FAERS Safety Report 7445797-1 (Version None)
Quarter: 2011Q2

REPORT INFORMATION
  Report Type: 
  Country: None (occurrence: None)
  Receive Date: 20110429
  Receipt Date: 20110426
  Transmission Date: 20111010
  Serious: Yes (Death, Life-Threatening, Hospitalization, Other)
  Sender: FDA-Public Use
  Company Number: JP-ABBOTT-11P-087-0714317-00

PATIENT
  Sex: Female

DRUGS (3)
  1. HUMIRA [Suspect]
     Indication: PRODUCT USED FOR UNKNOWN INDICATION
  2. LOXOPROFEN SODIUM HYDRATE [Concomitant]
     Indication: PRODUCT USED FOR UNKNOWN INDICATION
     Dates: end: 20101029
  3. PREDNISOLONE [Concomitant]
     Indication: PRODUCT USED FOR UNKNOWN INDICATION
     Dates: end: 20101013

REACTIONS (15)
  - VASCULAR GRAFT COMPLICATION [None]
  - MALAISE [None]
  - AORTIC ANEURYSM [None]
  - INFLAMMATORY MARKER INCREASED [None]
  - ANAEMIA [None]
  - AORTO-DUODENAL FISTULA [None]
  - PERITONEAL HAEMATOMA [None]
  - BACK PAIN [None]
  - HAEMATEMESIS [None]
  - AORTIC ANEURYSM RUPTURE [None]
  - MELAENA [None]
  - PYREXIA [None]
  - GRAM STAIN POSITIVE [None]
  - DEVICE RELATED INFECTION [None]
  - HAEMATOCHEZIA [None]
